FAERS Safety Report 19698023 (Version 3)
Quarter: 2021Q3

REPORT INFORMATION
  Report Type: Report from Study
  Country: None (occurrence: US)
  Receive Date: 20210812
  Receipt Date: 20210830
  Transmission Date: 20211014
  Serious: Yes (Other)
  Sender: FDA-Public Use
  Company Number: US-ABBVIE-21K-163-4032606-00

PATIENT
  Age: 67 Year
  Sex: Male

DRUGS (5)
  1. VENCLEXTA [Suspect]
     Active Substance: VENETOCLAX
     Indication: PRODUCT USED FOR UNKNOWN INDICATION
     Dosage: TWO 10 MG TABS FOR 7 DAYS
     Route: 048
  2. VENCLEXTA [Suspect]
     Active Substance: VENETOCLAX
     Dosage: TWO 100MG TABS FOR 7DAY WITH FOOD
     Route: 048
  3. VENCLEXTA [Suspect]
     Active Substance: VENETOCLAX
     Dosage: ONE 50MG TABS FOR 7DAY WITH FOOD
     Route: 048
  4. VENCLEXTA [Suspect]
     Active Substance: VENETOCLAX
     Dosage: ONE 100MG TABS FOR 7DAY WITH FOOD
     Route: 048
  5. RITUXAN [Suspect]
     Active Substance: RITUXIMAB
     Indication: PRODUCT USED FOR UNKNOWN INDICATION
     Route: 065

REACTIONS (10)
  - Chills [Recovering/Resolving]
  - Urine abnormality [Recovering/Resolving]
  - Sinus disorder [Not Recovered/Not Resolved]
  - Back pain [Unknown]
  - White blood cell count decreased [Not Recovered/Not Resolved]
  - Leukaemia [Unknown]
  - Pollakiuria [Unknown]
  - Sinusitis [Unknown]
  - Tremor [Recovering/Resolving]
  - Dysuria [Unknown]

NARRATIVE: CASE EVENT DATE: 202010
